FAERS Safety Report 4280030-3 (Version None)
Quarter: 2004Q1

REPORT INFORMATION
  Report Type: 
  Country: None (occurrence: None)
  Receive Date: 20040126
  Receipt Date: 20040114
  Transmission Date: 20041129
  Serious: Yes (Hospitalization)
  Sender: FDA-Public Use
  Company Number: 02100-JPN-03-0294

PATIENT
  Age: 83 Year
  Sex: Female

DRUGS (4)
  1. CILOSTAZOL [Suspect]
     Indication: THROMBOPHLEBITIS
     Dosage: 200 MG
     Route: 048
     Dates: start: 20031217, end: 20031224
  2. SODIUM RABEPRAZOLE [Concomitant]
  3. PRAVASTATIN SODIUM [Concomitant]
  4. ISOSORBIDE MONONITRATE [Concomitant]

REACTIONS (7)
  - BODY TEMPERATURE DECREASED [None]
  - DYSPEPSIA [None]
  - FLUSHING [None]
  - HAEMATOCRIT DECREASED [None]
  - HAEMOGLOBIN DECREASED [None]
  - LEUKOPENIA [None]
  - THROMBOCYTOPENIA [None]
